FAERS Safety Report 15470235 (Version 4)
Quarter: 2018Q4

REPORT INFORMATION
  Report Type: Spontaneous
  Country: US (occurrence: US)
  Receive Date: 20181005
  Receipt Date: 20181126
  Transmission Date: 20190205
  Serious: Yes (Other)
  Sender: FDA-Public Use
  Company Number: US-JNJFOC-20181000040

PATIENT
  Age: 56 Year
  Sex: Female

DRUGS (4)
  1. ALBUTEROL. [Concomitant]
     Active Substance: ALBUTEROL
     Indication: ASTHMA
     Route: 055
  2. BROMINE [Concomitant]
     Active Substance: BROMINE
     Route: 055
  3. REMICADE [Suspect]
     Active Substance: INFLIXIMAB
     Indication: CROHN^S DISEASE
     Route: 042
     Dates: start: 200702, end: 20180416
  4. CARDENOL [Concomitant]
     Indication: CARDIAC DISORDER
     Route: 065

REACTIONS (14)
  - Skin ulcer [Unknown]
  - Overdose [Unknown]
  - Product use issue [Unknown]
  - Hypersensitivity [Recovered/Resolved]
  - Pneumonia [Unknown]
  - Psoriatic arthropathy [Unknown]
  - Stoma site haemorrhage [Unknown]
  - Drug ineffective [Unknown]
  - Skin erosion [Unknown]
  - Liver disorder [Unknown]
  - Fungal infection [Unknown]
  - Headache [Unknown]
  - Stoma site infection [Unknown]
  - Off label use [Unknown]

NARRATIVE: CASE EVENT DATE: 2018
